FAERS Safety Report 17132366 (Version 1)
Quarter: 2019Q4

REPORT INFORMATION
  Report Type: Spontaneous
  Country: IT (occurrence: IT)
  Receive Date: 20191210
  Receipt Date: 20191210
  Transmission Date: 20200122
  Serious: Yes (Hospitalization, Other)
  Sender: FDA-Public Use
  Company Number: IT-AMGEN-ITANI2019202864

PATIENT
  Age: 37 Year
  Sex: Male

DRUGS (4)
  1. DELTACORTENE [Concomitant]
     Active Substance: PREDNISONE
     Indication: BEHCET^S SYNDROME
     Dosage: 35 MILLIGRAM
     Route: 048
     Dates: start: 20170401
  2. REUMAFLEX [ADENOSINE PHOSPHATE;AMINOPROPYRON;CYANOCOBALAMIN;THIAMINE H [Concomitant]
     Indication: BEHCET^S SYNDROME
     Dosage: 15 MILLIGRAM
     Route: 058
     Dates: start: 20171001, end: 20191001
  3. AMGEVITA [Suspect]
     Active Substance: ADALIMUMAB
     Indication: BEHCET^S SYNDROME
     Dosage: 40 MILLIGRAM, CYCLICAL
     Route: 058
     Dates: start: 20190601, end: 20190831
  4. DIBASE [Concomitant]
     Active Substance: CHOLECALCIFEROL
     Dosage: 25000 DOSAGE FORM
     Route: 048

REACTIONS (2)
  - Therapy non-responder [Recovering/Resolving]
  - Pulmonary artery aneurysm [Recovering/Resolving]

NARRATIVE: CASE EVENT DATE: 20190819
